FAERS Safety Report 12947511 (Version 2)
Quarter: 2017Q1

REPORT INFORMATION
  Report Type: Report from Study
  Country: CO (occurrence: CO)
  Receive Date: 20161116
  Receipt Date: 20170315
  Transmission Date: 20170428
  Serious: Yes (Death, Life-Threatening, Other)
  Sender: FDA-Public Use
  Company Number: CO-REGENERON PHARMACEUTICALS, INC.-2016-23917

PATIENT

DRUGS (1)
  1. EYLEA [Suspect]
     Active Substance: AFLIBERCEPT
     Indication: AGE-RELATED MACULAR DEGENERATION
     Dosage: 1 DF, Q2MON
     Dates: start: 20150117, end: 20160923

REACTIONS (2)
  - Eye pain [Recovering/Resolving]
  - Cerebrovascular accident [Fatal]

NARRATIVE: CASE EVENT DATE: 20160603
